FAERS Safety Report 6419992-4 (Version None)
Quarter: 2009Q4

REPORT INFORMATION
  Report Type: 
  Country: None (occurrence: None)
  Receive Date: 20091029
  Receipt Date: 20091021
  Transmission Date: 20100525
  Serious: Yes (Other)
  Sender: FDA-Public Use
  Company Number: US-PFIZER INC-2009287171

PATIENT

DRUGS (1)
  1. CELEBREX [Suspect]
     Route: 048
     Dates: end: 20090901

REACTIONS (1)
  - INTRAOCULAR PRESSURE INCREASED [None]
